FAERS Safety Report 25654290 (Version 2)
Quarter: 2025Q3

REPORT INFORMATION
  Report Type: Spontaneous
  Country: CL (occurrence: CL)
  Receive Date: 20250807
  Receipt Date: 20250813
  Transmission Date: 20251020
  Serious: Yes (Other)
  Sender: AMERICAN REGENT
  Company Number: CL-AMERICAN REGENT INC-2025002961

PATIENT
  Age: 49 Year
  Sex: Female

DRUGS (3)
  1. FERINJECT [Suspect]
     Active Substance: FERRIC CARBOXYMALTOSE
     Indication: Iron deficiency anaemia
     Route: 042
  2. IMATINIB [Concomitant]
     Active Substance: IMATINIB
     Indication: Chronic myeloid leukaemia
     Route: 065
  3. IRON [Concomitant]
     Active Substance: IRON
     Indication: Product used for unknown indication
     Route: 065

REACTIONS (3)
  - Fibroblast growth factor 23 increased [Unknown]
  - Urine phosphorus increased [Unknown]
  - Hypophosphataemia [Recovered/Resolved]
